FAERS Safety Report 4555726-6 (Version None)
Quarter: 2005Q1

REPORT INFORMATION
  Report Type: 
  Country: None (occurrence: None)
  Receive Date: 20050112
  Receipt Date: 20040520
  Transmission Date: 20050727
  Serious: Yes (Other)
  Sender: FDA-Public Use
  Company Number: 200417963BWH

PATIENT
  Age: 49 Year
  Sex: Female
  Weight: 83.9154 kg

DRUGS (6)
  1. CIPRO [Suspect]
     Indication: SINUSITIS
     Dosage: 1000 MG, TOTAL DAILY, ORAL
     Route: 048
     Dates: start: 20040204, end: 20040213
  2. VALTREX [Concomitant]
  3. LOW DOSE BIRTH CONTROL PILLS [Concomitant]
  4. SUDAFED 12 HOUR [Concomitant]
  5. VITAMIN E [Concomitant]
  6. SELDANE [Concomitant]

REACTIONS (5)
  - ABDOMINAL PAIN UPPER [None]
  - ARTHRALGIA [None]
  - DERMATITIS EXFOLIATIVE [None]
  - DIFFICULTY IN WALKING [None]
  - PAIN IN EXTREMITY [None]
